FAERS Safety Report 13270166 (Version 2)
Quarter: 2017Q1

REPORT INFORMATION
  Report Type: Spontaneous
  Country: KR (occurrence: KR)
  Receive Date: 20170224
  Receipt Date: 20170303
  Transmission Date: 20170428
  Serious: Yes (Other)
  Sender: FDA-Public Use
  Company Number: KR-009507513-1702KOR008055

PATIENT
  Age: 46 Year
  Sex: Female
  Weight: 55.7 kg

DRUGS (21)
  1. SANCUSO [Concomitant]
     Active Substance: GRANISETRON
     Indication: PROPHYLAXIS OF NAUSEA AND VOMITING
     Dosage: CONCENTRATION: 80.2X66.6MM2;1 EA QD
     Dates: start: 20161012, end: 20161018
  2. EMEND (FOSAPREPITANT DIMEGLUMINE) [Suspect]
     Active Substance: FOSAPREPITANT DIMEGLUMINE
     Dosage: 150 MG, ONCE
     Route: 042
     Dates: start: 20161103, end: 20161103
  3. QUETAPIN [Concomitant]
     Indication: DEPRESSION
     Dosage: 25 MG, QD
     Route: 048
     Dates: start: 20150924
  4. DUPHALAC-EASY [Concomitant]
     Indication: CONSTIPATION
     Dosage: 15 ML, BID
     Route: 048
     Dates: start: 20161012, end: 20161030
  5. MACPERAN [Concomitant]
     Active Substance: METOCLOPRAMIDE HYDROCHLORIDE
     Indication: PROPHYLAXIS OF NAUSEA AND VOMITING
     Dosage: 10 MG, BID
     Route: 042
     Dates: start: 20161013, end: 20161019
  6. LASIX [Concomitant]
     Active Substance: FUROSEMIDE
     Indication: PROPHYLAXIS
     Dosage: 20 MG, QD
     Route: 042
     Dates: start: 20161013, end: 20161013
  7. TRITTICO [Concomitant]
     Active Substance: TRAZODONE HYDROCHLORIDE
     Indication: DEPRESSION
     Dosage: 50 MG, QD
     Route: 048
     Dates: start: 20150914
  8. NEWPRAM [Concomitant]
     Indication: DEPRESSION
     Dosage: 15 MG, QD
     Route: 048
     Dates: start: 20140822
  9. CURAN [Concomitant]
     Active Substance: RANITIDINE HYDROCHLORIDE
     Indication: PROPHYLAXIS
     Dosage: CONCENTRATION: 50 MG/2ML
     Route: 042
     Dates: start: 20161013, end: 20161016
  10. ATIVAN [Concomitant]
     Active Substance: LORAZEPAM
     Indication: DEPRESSION
     Dosage: 0.5 MG, QD
     Route: 048
     Dates: start: 20140822
  11. CENTRUM ADVANCE [Concomitant]
     Active Substance: VITAMINS
     Indication: VITAMIN SUPPLEMENTATION
  12. MATRIFEN [Concomitant]
     Active Substance: FENTANYL
     Indication: CATHETER SITE PAIN
     Dosage: CONCENTRATION:12MCG/H 4.2CM2; ROUTE: PATCH
     Route: 050
     Dates: start: 20161013, end: 20161018
  13. EMEND (FOSAPREPITANT DIMEGLUMINE) [Suspect]
     Active Substance: FOSAPREPITANT DIMEGLUMINE
     Indication: PROPHYLAXIS OF NAUSEA AND VOMITING
     Dosage: 150 MG, ONCE
     Route: 042
     Dates: start: 20161013, end: 20161013
  14. EMEND (FOSAPREPITANT DIMEGLUMINE) [Suspect]
     Active Substance: FOSAPREPITANT DIMEGLUMINE
     Dosage: 150 MG, ONCE
     Route: 042
     Dates: start: 20161124, end: 20161124
  15. DEXAMETHASONE YUHAN [Concomitant]
     Indication: PROPHYLAXIS OF NAUSEA AND VOMITING
     Dosage: CONCENTRATION: 5MG/ML; 12 MG ONCE
     Route: 042
     Dates: start: 20161013, end: 20161013
  16. CENTRUM ADVANCE [Concomitant]
     Active Substance: VITAMINS
     Indication: MINERAL SUPPLEMENTATION
     Dosage: 1 TABLET, QD
     Route: 048
     Dates: start: 20161012, end: 20161109
  17. CISPLATIN. [Concomitant]
     Active Substance: CISPLATIN
     Indication: HEAD AND NECK CANCER
     Dosage: CONCENTRATION: 50MG/100ML; 155 MG ONCE, CYCLE 1
     Route: 042
     Dates: start: 20161013, end: 20161013
  18. DEXAMETHASONE YUHAN [Concomitant]
     Dosage: CONCENTRATION: 5MG/ML; 10 MG QD
     Route: 042
     Dates: start: 20161014, end: 20161016
  19. ATIVAN [Concomitant]
     Active Substance: LORAZEPAM
     Indication: DEPRESSION
     Dosage: 1 MG, TID
     Route: 048
     Dates: start: 20140821
  20. BUKWANG STILNOX [Concomitant]
     Indication: DEPRESSION
     Dosage: 10 MG, QD
     Route: 048
     Dates: start: 20150914
  21. BACRON (BACLOFEN) [Concomitant]
     Indication: HICCUPS
     Dosage: 5 MG, TID
     Route: 048
     Dates: start: 20161014, end: 20161017

REACTIONS (12)
  - Productive cough [Recovered/Resolved]
  - Muscle tightness [Unknown]
  - Feeling hot [Unknown]
  - Cough [Recovered/Resolved]
  - Dyspepsia [Recovered/Resolved]
  - Constipation [Recovered/Resolved]
  - Stomatitis [Unknown]
  - Neutrophil count decreased [Unknown]
  - Erythema [Unknown]
  - Hiccups [Unknown]
  - Laryngitis [Unknown]
  - Local swelling [Recovered/Resolved]

NARRATIVE: CASE EVENT DATE: 20161021
